FAERS Safety Report 5551781-5 (Version None)
Quarter: 2007Q4

REPORT INFORMATION
  Report Type: 
  Country: None (occurrence: None)
  Receive Date: 20071212
  Receipt Date: 20071127
  Transmission Date: 20080405
  Serious: Yes (Life-Threatening)
  Sender: FDA-Public Use
  Company Number: CH-BOEHRINGER INGELHEIM PHARMACEUTICALS, INC.-2007-DE-07248SI

PATIENT
  Sex: Male
  Weight: 88 kg

DRUGS (3)
  1. PRADIF T [Suspect]
     Indication: BENIGN PROSTATIC HYPERPLASIA
     Route: 048
     Dates: start: 20061127, end: 20071104
  2. DIOVAN HCT [Concomitant]
     Indication: HYPERTENSION
     Dosage: STRENGTH: 160/25MG, DAILY DOSE: 160/25MG
     Route: 048
  3. ATENOLOL [Concomitant]
     Indication: HYPERTENSION
     Route: 048

REACTIONS (1)
  - BLOOD PRESSURE DECREASED [None]
